FAERS Safety Report 10250212 (Version 1)
Quarter: 2014Q2

REPORT INFORMATION
  Report Type: Spontaneous
  Country: RU (occurrence: RU)
  Receive Date: 20140620
  Receipt Date: 20140620
  Transmission Date: 20141212
  Serious: Yes (Life-Threatening)
  Sender: FDA-Public Use
  Company Number: RU-BAYER-2014-090181

PATIENT
  Age: 37 Year
  Sex: Male

DRUGS (1)
  1. ULTRAVIST [Suspect]
     Indication: ARTERIOGRAM RENAL
     Dosage: 300 MG/ML, ONCE
     Route: 042
     Dates: start: 20140609, end: 20140609

REACTIONS (1)
  - Urticaria [Recovered/Resolved]
